FAERS Safety Report 18321010 (Version 1)
Quarter: 2020Q3

REPORT INFORMATION
  Report Type: Spontaneous
  Country: ES (occurrence: ES)
  Receive Date: 20200929
  Receipt Date: 20200929
  Transmission Date: 20201103
  Serious: Yes (Hospitalization)
  Sender: FDA-Public Use
  Company Number: ES-UNICHEM PHARMACEUTICALS (USA) INC-UCM202009-001053

PATIENT
  Age: 57 Year
  Sex: Female

DRUGS (1)
  1. LAMOTRIGINE. [Suspect]
     Active Substance: LAMOTRIGINE
     Indication: PETIT MAL EPILEPSY

REACTIONS (6)
  - Hypoxia [Recovered/Resolved]
  - Rash maculo-papular [Recovered/Resolved]
  - Hypersensitivity [Recovered/Resolved]
  - Respiratory distress [Recovered/Resolved]
  - Organising pneumonia [Recovered/Resolved]
  - Malaise [Recovered/Resolved]
